FAERS Safety Report 22264532 (Version 1)
Quarter: 2023Q2

REPORT INFORMATION
  Report Type: Spontaneous
  Country: US (occurrence: None)
  Receive Date: 20230427
  Receipt Date: 20230427
  Transmission Date: 20230721
  Serious: Yes (unspecified)
  Sender: FDA-Public Use
  Company Number: None

PATIENT
  Age: 44 Year
  Sex: Female
  Weight: 49.05 kg

DRUGS (5)
  1. APRISO [Suspect]
     Active Substance: MESALAMINE
     Indication: Colitis ulcerative
     Dates: start: 20210401, end: 20230301
  2. Nasal spray Azelastine [Concomitant]
  3. TYLENOL [Concomitant]
     Active Substance: ACETAMINOPHEN
  4. VITAMIN D [Concomitant]
     Active Substance: VITAMIN D NOS
  5. multivitamin GNC [Concomitant]

REACTIONS (9)
  - Drug intolerance [None]
  - Thirst [None]
  - Pruritus [None]
  - Fatigue [None]
  - Abdominal pain [None]
  - Liver function test increased [None]
  - Night sweats [None]
  - Vomiting [None]
  - Hepatomegaly [None]

NARRATIVE: CASE EVENT DATE: 20220201
